FAERS Safety Report 5041272-2 (Version None)
Quarter: 2006Q2

REPORT INFORMATION
  Report Type: 
  Country: None (occurrence: None)
  Receive Date: 20060623
  Receipt Date: 20060614
  Transmission Date: 20061013
  Serious: Yes (Hospitalization)
  Sender: FDA-Public Use
  Company Number: 226319

PATIENT
  Age: 32 Year
  Sex: Female

DRUGS (1)
  1. CATHIFLO ACTIVASE(ALTEPLASE) PWDR + SOLVENT, INFUSION SOLN, 2MG [Suspect]
     Indication: CATHETER RELATED COMPLICATION

REACTIONS (3)
  - CATHETER SITE HAEMORRHAGE [None]
  - EPISTAXIS [None]
  - GASTROENTERITIS VIRAL [None]
